FAERS Safety Report 10004642 (Version 1)
Quarter: 2014Q1

REPORT INFORMATION
  Report Type: Spontaneous
  Country: GB (occurrence: GB)
  Receive Date: 20140312
  Receipt Date: 20140312
  Transmission Date: 20141002
  Serious: Yes (Disabling)
  Sender: FDA-Public Use
  Company Number: GB-PFIZER INC-2014066479

PATIENT
  Age: 39 Year
  Sex: Female
  Weight: 99.7 kg

DRUGS (14)
  1. FESOTERODINE [Suspect]
     Dosage: UNK
     Dates: start: 20140207
  2. AMLODIPINE [Concomitant]
     Dosage: UNK
     Dates: start: 20131107
  3. AMOROLFINE [Concomitant]
     Dosage: UNK
     Dates: start: 20140108, end: 20140205
  4. ATORVASTATIN [Concomitant]
     Dosage: UNK
     Dates: start: 20131107
  5. BACLOFEN [Concomitant]
     Dosage: UNK
     Dates: start: 20131107
  6. CITALOPRAM [Concomitant]
     Dosage: UNK
     Dates: start: 20131107
  7. CLOPIDOGREL [Concomitant]
     Dates: start: 20131107
  8. DEPO-MEDRONE [Concomitant]
     Dosage: UNK
     Dates: start: 20131210, end: 20131211
  9. E45 [Concomitant]
     Dosage: UNK
     Dates: start: 20131223, end: 20140122
  10. GABAPENTIN [Concomitant]
     Dosage: UNK
     Dates: start: 20140116
  11. LANSOPRAZOLE [Concomitant]
     Dosage: UNK
     Dates: start: 20131107
  12. PARACETAMOL [Concomitant]
     Dosage: UNK
     Dates: start: 20131107
  13. SOLIFENACIN SUCCINATE [Concomitant]
     Dosage: UNK
     Dates: start: 20131107
  14. TRAMADOL [Concomitant]
     Dosage: UNK
     Dates: start: 20131107

REACTIONS (7)
  - Vomiting [Recovered/Resolved]
  - Diplopia [Recovered/Resolved]
  - Gait disturbance [Recovered/Resolved]
  - Balance disorder [Recovered/Resolved]
  - Dyspnoea [Recovered/Resolved]
  - Gastroenteritis [Recovered/Resolved]
  - Dizziness [Recovered/Resolved]
